FAERS Safety Report 6984451-7 (Version None)
Quarter: 2010Q3

REPORT INFORMATION
  Report Type: 
  Country: None (occurrence: None)
  Receive Date: 20100915
  Receipt Date: 20100907
  Transmission Date: 20110219
  Serious: Yes (Other)
  Sender: FDA-Public Use
  Company Number: PL-BAXTER-2010BH022983

PATIENT
  Age: 3 Year
  Sex: Male
  Weight: 13 kg

DRUGS (3)
  1. GAMMAGARD LIQUID [Suspect]
     Indication: PURPURA
     Route: 042
     Dates: start: 20100812, end: 20100812
  2. GAMMAGARD LIQUID [Suspect]
     Indication: HAEMORRHAGIC DISORDER
     Route: 042
     Dates: start: 20100812, end: 20100812
  3. GAMMAGARD LIQUID [Suspect]
     Indication: OFF LABEL USE
     Route: 042
     Dates: start: 20100812, end: 20100812

REACTIONS (3)
  - ANXIETY [None]
  - CHILLS [None]
  - PYREXIA [None]
